FAERS Safety Report 6108329-6 (Version None)
Quarter: 2009Q1

REPORT INFORMATION
  Report Type: 
  Country: None (occurrence: None)
  Receive Date: 20090309
  Receipt Date: 20090304
  Transmission Date: 20090719
  Serious: Yes (Death, Hospitalization, Other)
  Sender: FDA-Public Use
  Company Number: US-CELGENEUS-163-21880-08121518

PATIENT
  Sex: Female

DRUGS (1)
  1. REVLIMID [Suspect]
     Indication: MULTIPLE MYELOMA
     Route: 048
     Dates: start: 20080806, end: 20081211

REACTIONS (8)
  - CONVULSION [None]
  - DEATH [None]
  - DEEP VEIN THROMBOSIS [None]
  - DEHYDRATION [None]
  - HYPOTENSION [None]
  - MYOPATHY [None]
  - RETROPERITONEAL HAEMORRHAGE [None]
  - SEPSIS [None]
